FAERS Safety Report 10888189 (Version 1)
Quarter: 2015Q1

REPORT INFORMATION
  Report Type: Report from Study
  Country: AU (occurrence: AU)
  Receive Date: 20150304
  Receipt Date: 20150304
  Transmission Date: 20150721
  Serious: Yes (Other)
  Sender: FDA-Public Use
  Company Number: AU-ROCHE-1515423

PATIENT
  Age: 50 Year
  Sex: Female

DRUGS (3)
  1. METHOTREXATE [Concomitant]
     Active Substance: METHOTREXATE
     Indication: RHEUMATOID ARTHRITIS
     Route: 048
  2. CELEBREX [Concomitant]
     Active Substance: CELECOXIB
     Indication: RHEUMATOID ARTHRITIS
     Dosage: 1 TABLET EACH TIME
     Route: 048
  3. ACTEMRA [Suspect]
     Active Substance: TOCILIZUMAB
     Indication: RHEUMATOID ARTHRITIS
     Route: 042
     Dates: start: 20141204

REACTIONS (18)
  - Pain [Unknown]
  - Blister [Recovering/Resolving]
  - Infected skin ulcer [Recovering/Resolving]
  - Oral herpes [Recovered/Resolved]
  - Sleep disorder [Not Recovered/Not Resolved]
  - Hyperhidrosis [Unknown]
  - Eye oedema [Not Recovered/Not Resolved]
  - Mouth ulceration [Recovered/Resolved]
  - Nausea [Not Recovered/Not Resolved]
  - Pruritus [Recovering/Resolving]
  - Hot flush [Not Recovered/Not Resolved]
  - Lethargy [Recovering/Resolving]
  - Blood cholesterol increased [Not Recovered/Not Resolved]
  - Asthenia [Not Recovered/Not Resolved]
  - Swelling [Not Recovered/Not Resolved]
  - Headache [Recovering/Resolving]
  - Dizziness [Recovering/Resolving]
  - Hyperaesthesia [Unknown]

NARRATIVE: CASE EVENT DATE: 20141204
